FAERS Safety Report 6089575-7 (Version None)
Quarter: 2009Q1

REPORT INFORMATION
  Report Type: 
  Country: None (occurrence: None)
  Receive Date: 20090224
  Receipt Date: 20090210
  Transmission Date: 20090719
  Serious: Yes (Death, Hospitalization, Other)
  Sender: FDA-Public Use
  Company Number: US-BAXTER-2008BH013714

PATIENT
  Age: 75 Year
  Sex: Female
  Weight: 83 kg

DRUGS (36)
  1. HEPARIN SODIUM INJECTION [Suspect]
     Indication: DRUG USE FOR UNKNOWN INDICATION
     Route: 042
     Dates: start: 20071105
  2. HEPARIN SODIUM INJECTION [Suspect]
     Route: 042
     Dates: start: 20071105
  3. HEPARIN SODIUM INJECTION [Suspect]
     Route: 042
     Dates: start: 20071121
  4. HEPARIN SODIUM INJECTION [Suspect]
     Route: 042
     Dates: start: 20071121
  5. HEPARIN SODIUM INJECTION [Suspect]
     Route: 042
     Dates: start: 20071129
  6. HEPARIN SODIUM INJECTION [Suspect]
     Route: 042
     Dates: start: 20071129
  7. HEPARIN SODIUM INJECTION [Suspect]
     Route: 042
     Dates: start: 20071224, end: 20071224
  8. HEPARIN SODIUM INJECTION [Suspect]
     Route: 042
     Dates: start: 20071224, end: 20071224
  9. HEPARIN SODIUM INJECTION [Suspect]
     Route: 042
     Dates: start: 20071203
  10. HEPARIN SODIUM INJECTION [Suspect]
     Route: 042
     Dates: start: 20071203
  11. CHEMOTHERAPY [Concomitant]
     Indication: DRUG USE FOR UNKNOWN INDICATION
     Route: 065
  12. LASIX [Concomitant]
     Indication: DRUG USE FOR UNKNOWN INDICATION
     Route: 065
  13. LEVOTHYROXINE SODIUM [Concomitant]
     Indication: DRUG USE FOR UNKNOWN INDICATION
     Route: 065
  14. THEO-24 [Concomitant]
     Indication: DRUG USE FOR UNKNOWN INDICATION
     Route: 065
  15. LETAPRO [Concomitant]
     Indication: DRUG USE FOR UNKNOWN INDICATION
     Route: 065
  16. KLOR-CON [Concomitant]
     Indication: DRUG USE FOR UNKNOWN INDICATION
     Route: 065
  17. PREDNISONE [Concomitant]
     Indication: DRUG USE FOR UNKNOWN INDICATION
     Route: 065
  18. CENTRUM SILVER [Concomitant]
     Indication: DRUG USE FOR UNKNOWN INDICATION
     Route: 065
  19. XOPENEX [Concomitant]
     Indication: DRUG USE FOR UNKNOWN INDICATION
     Route: 055
  20. SPIRIVA [Concomitant]
     Indication: DRUG USE FOR UNKNOWN INDICATION
     Route: 055
  21. PULMICORT-100 [Concomitant]
     Indication: DRUG USE FOR UNKNOWN INDICATION
     Route: 055
  22. LASIX [Concomitant]
     Route: 065
  23. LEVOTHYROXINE SODIUM [Concomitant]
     Route: 065
  24. THEOPHYLLINE [Concomitant]
     Indication: DRUG USE FOR UNKNOWN INDICATION
     Route: 065
  25. TOLTERODINE LA [Concomitant]
     Indication: DRUG USE FOR UNKNOWN INDICATION
     Route: 065
  26. GUAIFENESIN LA [Concomitant]
     Indication: DRUG USE FOR UNKNOWN INDICATION
     Route: 065
  27. METHYLPRENISOLONE [Concomitant]
     Indication: DRUG USE FOR UNKNOWN INDICATION
     Route: 065
  28. INSULIN [Concomitant]
     Indication: DRUG USE FOR UNKNOWN INDICATION
     Route: 065
  29. MULTIPLE VITAMIN [Concomitant]
     Indication: DRUG USE FOR UNKNOWN INDICATION
     Route: 065
  30. ESOMEPRAZOLE MAGNESIUM [Concomitant]
     Indication: DRUG USE FOR UNKNOWN INDICATION
     Route: 065
  31. CLOPIDOGREL BISULFATE [Concomitant]
     Indication: DRUG USE FOR UNKNOWN INDICATION
     Route: 065
  32. NOREPINEPHRINE [Concomitant]
     Indication: DRUG USE FOR UNKNOWN INDICATION
     Route: 065
  33. ANGIOMAX [Concomitant]
     Indication: ANTICOAGULANT THERAPY
     Route: 040
     Dates: start: 20071224, end: 20071224
  34. ANGIOMAX [Concomitant]
     Indication: DRUG USE FOR UNKNOWN INDICATION
     Route: 041
     Dates: start: 20071224, end: 20071224
  35. ASPIRIN [Concomitant]
     Indication: DRUG USE FOR UNKNOWN INDICATION
     Route: 065
  36. FUROSEMIDE [Concomitant]
     Indication: DRUG USE FOR UNKNOWN INDICATION
     Route: 065

REACTIONS (37)
  - ACUTE RESPIRATORY FAILURE [None]
  - AGITATION [None]
  - ATRIAL FLUTTER [None]
  - BACK PAIN [None]
  - BREATH SOUNDS ABNORMAL [None]
  - CELLULITIS [None]
  - CHEST DISCOMFORT [None]
  - CHEST PAIN [None]
  - CHRONIC OBSTRUCTIVE PULMONARY DISEASE [None]
  - CONFUSIONAL STATE [None]
  - CYANOSIS [None]
  - DYSPNOEA [None]
  - FEELING COLD [None]
  - GENERALISED OEDEMA [None]
  - HYPERHIDROSIS [None]
  - HYPOTENSION [None]
  - HYPOVENTILATION [None]
  - LACTIC ACIDOSIS [None]
  - LETHARGY [None]
  - METABOLIC ACIDOSIS [None]
  - MUSCULAR WEAKNESS [None]
  - NAUSEA [None]
  - NEUTROPENIA [None]
  - PAIN [None]
  - POST PROCEDURAL HAEMATOMA [None]
  - PULSE PRESSURE DECREASED [None]
  - RENAL FAILURE [None]
  - RENAL FAILURE ACUTE [None]
  - RESPIRATORY DISTRESS [None]
  - RESTLESSNESS [None]
  - SCLERAL OEDEMA [None]
  - SEPSIS [None]
  - SEPTIC SHOCK [None]
  - SHOCK [None]
  - SMALL CELL LUNG CANCER METASTATIC [None]
  - UNRESPONSIVE TO STIMULI [None]
  - WHEEZING [None]
